FAERS Safety Report 5383737-X (Version None)
Quarter: 2007Q3

REPORT INFORMATION
  Report Type: 
  Country: None (occurrence: None)
  Receive Date: 20070711
  Receipt Date: 20070709
  Transmission Date: 20080115
  Serious: Yes (Other)
  Sender: FDA-Public Use
  Company Number: PHBS2007DE10308

PATIENT
  Age: 24 Year
  Sex: Female

DRUGS (1)
  1. TERBINAFINE [Suspect]

REACTIONS (2)
  - DISTURBANCE IN ATTENTION [None]
  - PSYCHOMOTOR RETARDATION [None]
